FAERS Safety Report 19615776 (Version 1)
Quarter: 2021Q3

REPORT INFORMATION
  Report Type: Spontaneous
  Country: IT (occurrence: IT)
  Receive Date: 20210727
  Receipt Date: 20210727
  Transmission Date: 20211014
  Serious: Yes (Other)
  Sender: FDA-Public Use
  Company Number: IT-PFIZER INC-2021882660

PATIENT
  Age: 65 Year
  Sex: Female

DRUGS (8)
  1. DELORAZEPAM [Suspect]
     Active Substance: DELORAZEPAM
     Dosage: 10 DF (20 TABLETS, 1 MG10 TABLETS)
     Route: 048
  2. GABAPENTIN. [Suspect]
     Active Substance: GABAPENTIN
     Dosage: UNK (30 CPS, 70 TABLETS)
     Route: 048
  3. LORAZEPAM. [Suspect]
     Active Substance: LORAZEPAM
     Dosage: 10 DF (10 TABLETS)
     Route: 048
  4. PHENELZINE [Suspect]
     Active Substance: PHENELZINE
     Dosage: UNK
     Route: 048
  5. TOPAMAX [Suspect]
     Active Substance: TOPIRAMATE
     Dosage: 120 DF (100 MG; (120 TABLETS))
     Route: 048
  6. REBOXETINE [Suspect]
     Active Substance: REBOXETINE
     Dosage: 60 DF (60 TABLETS)
     Route: 048
  7. TALOFEN [Suspect]
     Active Substance: PROMAZINE HYDROCHLORIDE
     Dosage: UNK
     Route: 065
  8. DELORAZEPAM [Suspect]
     Active Substance: DELORAZEPAM
     Dosage: 20 DF (20 TABLETS, 1 MG10 TABLETS)
     Route: 048

REACTIONS (6)
  - Coma [Unknown]
  - Intentional self-injury [Unknown]
  - Intentional overdose [Unknown]
  - Pain [Unknown]
  - Hypotension [Unknown]
  - Tachycardia [Unknown]
